FAERS Safety Report 9348506 (Version 2)
Quarter: 2013Q2

REPORT INFORMATION
  Report Type: Spontaneous
  Country: GB (occurrence: GB)
  Receive Date: 20130614
  Receipt Date: 20130628
  Transmission Date: 20140414
  Serious: Yes (Other)
  Sender: FDA-Public Use
  Company Number: GB-009507513-1212GBR003092

PATIENT
  Age: 24 Year
  Sex: Female

DRUGS (3)
  1. IMPLANON [Suspect]
     Indication: CONTRACEPTION
     Dosage: UNK
     Route: 030
     Dates: start: 20091001
  2. AMITRIPTYLINE HYDROCHLORIDE [Concomitant]
     Indication: BACK PAIN
  3. AMITRIPTYLINE HYDROCHLORIDE [Concomitant]
     Indication: ADNEXA UTERI PAIN

REACTIONS (9)
  - Abortion induced [Unknown]
  - Ectopic pregnancy [Recovered/Resolved]
  - Medical device complication [Unknown]
  - Incorrect drug administration duration [Unknown]
  - Unintended pregnancy [Recovered/Resolved]
  - Adnexa uteri pain [Unknown]
  - Ovarian enlargement [Unknown]
  - Device deployment issue [Unknown]
  - Incorrect route of drug administration [Unknown]
